FAERS Safety Report 14085171 (Version 3)
Quarter: 2018Q2

REPORT INFORMATION
  Report Type: Spontaneous
  Country: US (occurrence: US)
  Receive Date: 20171013
  Receipt Date: 20180525
  Transmission Date: 20180711
  Serious: Yes (Other)
  Sender: FDA-Public Use
  Company Number: US-ASTRAZENECA-2017SF04068

PATIENT
  Age: 622 Month
  Sex: Male
  Weight: 83.9 kg

DRUGS (5)
  1. LEVETIRACETAM. [Concomitant]
     Active Substance: LEVETIRACETAM
     Indication: SEIZURE
     Route: 048
     Dates: start: 20170111
  2. CHLOROTHALIDONE [Concomitant]
     Indication: HYPERTENSION
     Route: 048
  3. TAGRISSO [Suspect]
     Active Substance: OSIMERTINIB
     Indication: BRAIN CANCER METASTATIC
     Route: 048
  4. TAGRISSO [Suspect]
     Active Substance: OSIMERTINIB
     Indication: BRAIN CANCER METASTATIC
     Route: 048
  5. IRESSA [Suspect]
     Active Substance: GEFITINIB
     Indication: NON-SMALL CELL LUNG CANCER
     Route: 048
     Dates: start: 20170117

REACTIONS (14)
  - Blood calcium decreased [Unknown]
  - Off label use [Unknown]
  - Asbestosis [Unknown]
  - Malignant neoplasm progression [Not Recovered/Not Resolved]
  - Metastases to bone [Unknown]
  - Metastases to adrenals [Not Recovered/Not Resolved]
  - Exposed bone in jaw [Unknown]
  - Gait inability [Unknown]
  - Convulsions local [Unknown]
  - Brain oedema [Unknown]
  - Insomnia [Unknown]
  - Blood potassium decreased [Unknown]
  - Tremor [Unknown]
  - Product use in unapproved indication [Unknown]

NARRATIVE: CASE EVENT DATE: 201701
